FAERS Safety Report 17345963 (Version 1)
Quarter: 2020Q1

REPORT INFORMATION
  Report Type: Spontaneous
  Country: US (occurrence: US)
  Receive Date: 20200129
  Receipt Date: 20200129
  Transmission Date: 20200409
  Serious: Yes (Death)
  Sender: FDA-Public Use
  Company Number: US-JNJFOC-20200138513

PATIENT
  Age: 83 Year
  Sex: Female

DRUGS (8)
  1. DABIGATRAN [Suspect]
     Active Substance: DABIGATRAN
     Indication: PRODUCT USED FOR UNKNOWN INDICATION
     Route: 048
  2. DABIGATRAN [Suspect]
     Active Substance: DABIGATRAN
     Route: 061
  3. GABAPENTIN. [Suspect]
     Active Substance: GABAPENTIN
     Route: 061
  4. DURAGESIC [Suspect]
     Active Substance: FENTANYL
     Route: 062
  5. DURAGESIC [Suspect]
     Active Substance: FENTANYL
     Indication: PRODUCT USED FOR UNKNOWN INDICATION
     Route: 048
  6. PRIMIDONE. [Suspect]
     Active Substance: PRIMIDONE
     Indication: PRODUCT USED FOR UNKNOWN INDICATION
     Route: 048
  7. GABAPENTIN. [Suspect]
     Active Substance: GABAPENTIN
     Indication: PRODUCT USED FOR UNKNOWN INDICATION
     Route: 048
  8. PRIMIDONE. [Suspect]
     Active Substance: PRIMIDONE
     Route: 061

REACTIONS (2)
  - Incorrect route of product administration [Fatal]
  - Toxicity to various agents [Fatal]
